FAERS Safety Report 22071349 (Version 1)
Quarter: 2023Q1

REPORT INFORMATION
  Report Type: Spontaneous
  Country: JP (occurrence: JP)
  Receive Date: 20230307
  Receipt Date: 20230307
  Transmission Date: 20230418
  Serious: Yes (Hospitalization)
  Sender: FDA-Public Use
  Company Number: JP-ferring-EVA202300019FERRINGPH

PATIENT
  Sex: Male

DRUGS (1)
  1. DINOPROSTONE [Suspect]
     Active Substance: DINOPROSTONE
     Indication: Induction of cervix ripening
     Dosage: UNK
     Route: 064
     Dates: start: 20210622, end: 20210622

REACTIONS (1)
  - Neonatal asphyxia [Recovering/Resolving]

NARRATIVE: CASE EVENT DATE: 20210623
